FAERS Safety Report 5264126-5 (Version None)
Quarter: 2007Q1

REPORT INFORMATION
  Report Type: 
  Country: None (occurrence: None)
  Receive Date: 20070313
  Receipt Date: 20070301
  Transmission Date: 20070707
  Serious: Yes (Hospitalization)
  Sender: FDA-Public Use
  Company Number: DE-PFIZER INC-2007012503

PATIENT
  Sex: Female
  Weight: 57 kg

DRUGS (5)
  1. AZULFIDINE [Suspect]
     Indication: CROHN'S DISEASE
     Route: 048
     Dates: start: 20070112, end: 20070129
  2. AZULFIDINE [Suspect]
     Indication: POLYARTHRITIS
  3. IMUREK [Concomitant]
     Route: 048
  4. ANTIHYPERTENSIVES [Concomitant]
  5. INSULIN [Concomitant]
     Dates: start: 19880101

REACTIONS (4)
  - DIZZINESS [None]
  - HYPOAESTHESIA [None]
  - MUSCULAR WEAKNESS [None]
  - PARAESTHESIA [None]
